FAERS Safety Report 9553513 (Version 1)
Quarter: 2013Q3

REPORT INFORMATION
  Report Type: Spontaneous
  Country: US (occurrence: US)
  Receive Date: 20130925
  Receipt Date: 20130925
  Transmission Date: 20140515
  Serious: Yes (Other)
  Sender: FDA-Public Use
  Company Number: US-PFIZER INC-2013272537

PATIENT
  Sex: Female

DRUGS (3)
  1. DESVENLAFAXINE SUCCINATE MONOHYDRATE [Suspect]
     Dosage: IN THE MORNING
     Route: 048
     Dates: start: 201201, end: 2012
  2. DESVENLAFAXINE SUCCINATE MONOHYDRATE [Suspect]
     Dosage: IN THE EVENING
     Route: 048
     Dates: start: 2012, end: 20120521
  3. CYMBALTA [Suspect]
     Dosage: IN THE MORNING
     Route: 048
     Dates: start: 201201, end: 20120521

REACTIONS (5)
  - Loss of consciousness [Unknown]
  - Joint injury [Unknown]
  - Fall [Unknown]
  - Dizziness [Unknown]
  - Feeling abnormal [Unknown]
